FAERS Safety Report 14837309 (Version 1)
Quarter: 2018Q2

REPORT INFORMATION
  Report Type: Spontaneous
  Country: US (occurrence: US)
  Receive Date: 20180418
  Receipt Date: 20180418
  Transmission Date: 20180711
  Serious: No
  Sender: FDA-Public Use
  Company Number: None

PATIENT
  Age: 50 Year
  Sex: Female
  Weight: 103.05 kg

DRUGS (10)
  1. CYMBALTA [Concomitant]
     Active Substance: DULOXETINE HYDROCHLORIDE
  2. VITAMIN D [Concomitant]
     Active Substance: CHOLECALCIFEROL
  3. ESTRACE [Concomitant]
     Active Substance: ESTRADIOL
  4. LOVASTATIN. [Concomitant]
     Active Substance: LOVASTATIN
  5. RIBOFLAVIN [Concomitant]
     Active Substance: RIBOFLAVIN
  6. VITAMIN B12 [Concomitant]
     Active Substance: CYANOCOBALAMIN
  7. NEXIUM [Concomitant]
     Active Substance: ESOMEPRAZOLE MAGNESIUM
  8. CONTRAVE [Suspect]
     Active Substance: BUPROPION HYDROCHLORIDE\NALTREXONE HYDROCHLORIDE
     Indication: WEIGHT CONTROL
     Route: 048
  9. MAG-OX [Concomitant]
     Active Substance: MAGNESIUM OXIDE
  10. TOPROL XL [Concomitant]
     Active Substance: METOPROLOL SUCCINATE

REACTIONS (7)
  - Balance disorder [None]
  - Tremor [None]
  - Myalgia [None]
  - Dry mouth [None]
  - Asthenia [None]
  - Dyskinesia [None]
  - Discomfort [None]

NARRATIVE: CASE EVENT DATE: 20180417
